FAERS Safety Report 20223070 (Version 1)
Quarter: 2021Q4

REPORT INFORMATION
  Report Type: Spontaneous
  Country: US (occurrence: US)
  Receive Date: 20211223
  Receipt Date: 20211223
  Transmission Date: 20220303
  Serious: No
  Sender: FDA-Public Use
  Company Number: US-PFIZER INC-202101295702

PATIENT
  Sex: Female

DRUGS (1)
  1. EXEMESTANE [Suspect]
     Active Substance: EXEMESTANE
     Dosage: 25 MG

REACTIONS (3)
  - Malaise [Unknown]
  - Psychomotor hyperactivity [Unknown]
  - Feeling jittery [Unknown]
